FAERS Safety Report 8691968 (Version 3)
Quarter: 2012Q4

REPORT INFORMATION
  Report Type: 
  Country: JP (occurrence: JP)
  Receive Date: 20120730
  Receipt Date: 20120924
  Transmission Date: 20130627
  Serious: Yes (Hospitalization)
  Sender: FDA-Public Use
  Company Number: JP-UCBSA-062222

PATIENT
  Age: 50 Year
  Sex: Male

DRUGS (4)
  1. E KEPPRA [Suspect]
     Indication: EPILEPSY
     Route: 048
     Dates: start: 20120703, end: 20120717
  2. ALEVIATIN [Concomitant]
     Dosage: UNKNOWN DOSE
     Route: 048
  3. SELENICA-R [Concomitant]
     Dosage: UNKNOWN DOSE
     Route: 048
  4. RIVOTRIL [Concomitant]
     Dosage: UNKNOWN DOSE
     Route: 048

REACTIONS (2)
  - Diplopia [Not Recovered/Not Resolved]
  - Tremor [Not Recovered/Not Resolved]
